FAERS Safety Report 6411592-5 (Version None)
Quarter: 2009Q4

REPORT INFORMATION
  Report Type: 
  Country: None (occurrence: None)
  Receive Date: 20091023
  Receipt Date: 20091015
  Transmission Date: 20100525
  Serious: Yes (Other)
  Sender: FDA-Public Use
  Company Number: US-JNJFOC-20091005771

PATIENT
  Sex: Female
  Weight: 61.24 kg

DRUGS (4)
  1. DURAGESIC-100 [Suspect]
     Indication: ABDOMINAL PAIN UPPER
     Route: 062
     Dates: start: 20050101, end: 20091001
  2. OXYCODONE [Concomitant]
     Indication: BREAKTHROUGH PAIN
     Route: 048
     Dates: start: 20040101
  3. ALPRAZOLAM [Concomitant]
     Indication: ANXIETY
     Route: 048
     Dates: start: 19990101
  4. PREMPRO [Concomitant]
     Route: 065
     Dates: start: 20040101

REACTIONS (2)
  - INAPPROPRIATE SCHEDULE OF DRUG ADMINISTRATION [None]
  - NEPHROLITHIASIS [None]
